FAERS Safety Report 21702546 (Version 1)
Quarter: 2022Q4

REPORT INFORMATION
  Report Type: Spontaneous
  Country: US (occurrence: US)
  Receive Date: 20221208
  Receipt Date: 20221208
  Transmission Date: 20230113
  Serious: No
  Sender: FDA-Public Use
  Company Number: US-IBSA PHARMA INC.-2022IBS000120

PATIENT

DRUGS (1)
  1. TIROSINT [Suspect]
     Active Substance: LEVOTHYROXINE SODIUM
     Indication: Thyroid hormone replacement therapy
     Dosage: 150 ?G, BID
     Route: 048
     Dates: start: 2022

REACTIONS (7)
  - Ocular hyperaemia [Not Recovered/Not Resolved]
  - Trichoglossia [Not Recovered/Not Resolved]
  - Erythema [Not Recovered/Not Resolved]
  - Migraine [Not Recovered/Not Resolved]
  - Oral disorder [Not Recovered/Not Resolved]
  - Adverse event [Not Recovered/Not Resolved]
  - Fatigue [Not Recovered/Not Resolved]

NARRATIVE: CASE EVENT DATE: 20220101
